FAERS Safety Report 11179954 (Version 1)
Quarter: 2015Q2

REPORT INFORMATION
  Report Type: Spontaneous
  Country: US (occurrence: US)
  Receive Date: 20150611
  Receipt Date: 20150611
  Transmission Date: 20150821
  Serious: No
  Sender: FDA-Public Use
  Company Number: US-TEVA-556550USA

PATIENT
  Age: 55 Year
  Sex: Female

DRUGS (1)
  1. CAPECITABINE. [Suspect]
     Active Substance: CAPECITABINE
     Dosage: 4000 MILLIGRAM DAILY; 4 TABLETS TWICE A DAY FOR 2 WEEKS ON AND 1 WEEK OFF
     Route: 048

REACTIONS (4)
  - Skin discolouration [Unknown]
  - Skin exfoliation [Unknown]
  - Asthenia [Unknown]
  - Peripheral coldness [Unknown]
